FAERS Safety Report 7714938-0 (Version None)
Quarter: 2011Q3

REPORT INFORMATION
  Report Type: 
  Country: None (occurrence: None)
  Receive Date: 20110829
  Receipt Date: 20101020
  Transmission Date: 20111222
  Serious: No
  Sender: FDA-Public Use
  Company Number: US-GLAXOSMITHKLINE-A0887853A

PATIENT
  Age: 52 Year
  Sex: Female

DRUGS (4)
  1. ABREVA [Suspect]
     Indication: ORAL HERPES
     Route: 061
  2. LOTEMAX [Concomitant]
  3. ZOVIRAX [Suspect]
     Indication: HERPES SIMPLEX
     Dosage: 50MG FIVE TIMES PER DAY
     Route: 048
     Dates: start: 20100801, end: 20100801
  4. RESTASIS [Concomitant]

REACTIONS (10)
  - LIP PAIN [None]
  - LIP HAEMORRHAGE [None]
  - PARAESTHESIA ORAL [None]
  - DRUG INEFFECTIVE [None]
  - LIP PRURITUS [None]
  - LIP SWELLING [None]
  - CHAPPED LIPS [None]
  - LIP EXFOLIATION [None]
  - ORAL HERPES [None]
  - BURNING SENSATION [None]
